FAERS Safety Report 13746142 (Version 1)
Quarter: 2017Q3

REPORT INFORMATION
  Report Type: Spontaneous
  Country: JP (occurrence: JP)
  Receive Date: 20170712
  Receipt Date: 20170712
  Transmission Date: 20171127
  Serious: Yes (Other)
  Sender: FDA-Public Use
  Company Number: JP-PFIZER INC-2017267996

PATIENT
  Age: 74 Year
  Sex: Male

DRUGS (18)
  1. ZOLPIDEM [Concomitant]
     Active Substance: ZOLPIDEM\ZOLPIDEM TARTRATE
     Dosage: 5 MG, 1X/DAY
     Route: 051
     Dates: start: 20160223
  2. SENNOSIDE [Concomitant]
     Active Substance: SENNOSIDES
     Dosage: 24 MG, 1X/DAY
     Route: 051
     Dates: start: 20160223
  3. CARBOCISTEINE [Concomitant]
     Active Substance: CARBOCYSTEINE
     Dosage: 1 G, 3X/DAY
     Route: 051
     Dates: start: 20160830
  4. MIYA-BM [Concomitant]
     Active Substance: CLOSTRIDIUM BUTYRICUM SPORES STRAIN M-55
     Dosage: 1 G, 3X/DAY
     Route: 051
     Dates: start: 20160223
  5. CLARITHROMYCIN. [Concomitant]
     Active Substance: CLARITHROMYCIN
     Dosage: 1 G, 2X/DAY
     Route: 051
     Dates: start: 20160830
  6. MASHI-NIN-GAN [Concomitant]
     Dosage: 2.5 G, 3X/DAY
     Route: 051
     Dates: start: 20170524
  7. LEVOFLOXACIN. [Concomitant]
     Active Substance: LEVOFLOXACIN
     Dosage: 500 MG, 1X/DAY
     Route: 051
     Dates: start: 20160607
  8. RACOL [Concomitant]
     Active Substance: AMINO ACIDS\DEXTROSE\ELECTROLYTES NOS
     Dosage: 600 ML, 3X/DAY
     Route: 051
     Dates: start: 20160223
  9. POLAPREZINC [Concomitant]
     Active Substance: POLAPREZINC
     Dosage: 0.5 G, 2X/DAY
     Dates: start: 20161228
  10. LANSOPRAZOLE. [Concomitant]
     Active Substance: LANSOPRAZOLE
     Dosage: 15 MG, 1X/DAY
     Route: 051
     Dates: start: 20160223
  11. LYRICA [Suspect]
     Active Substance: PREGABALIN
     Indication: FIBROMYALGIA
     Dosage: 225 MG, 2X/DAY
     Route: 051
     Dates: start: 20170224
  12. SODIUM CHLORIDE. [Concomitant]
     Active Substance: SODIUM CHLORIDE
     Dosage: 0.5 G, 2X/DAY
     Route: 051
     Dates: start: 20160223
  13. LOXOPROFEN SODIUM [Concomitant]
     Active Substance: LOXOPROFEN SODIUM
     Dosage: 60 MG, 2X/DAY
     Route: 051
     Dates: start: 20160223
  14. TOLEDOMIN [Concomitant]
     Active Substance: MILNACIPRAN HYDROCHLORIDE
     Dosage: 50 MG, 2X/DAY
     Route: 051
     Dates: start: 20161214
  15. TRAMAL [Concomitant]
     Active Substance: TRAMADOL
     Dosage: 50 MG, 4X/DAY
     Dates: start: 20170308
  16. SODIUM FERROUS CITRATE [Suspect]
     Active Substance: SODIUM FERROUS CITRATE
     Dosage: 50 MG, 2X/DAY
     Route: 051
     Dates: start: 20160921, end: 20170613
  17. CINAL [Suspect]
     Active Substance: ASCORBIC ACID\CALCIUM PANTOTHENATE
     Dosage: 1 G, 2X/DAY
     Route: 051
     Dates: start: 20160921, end: 20170613
  18. JUZEN-TAIHO-TO [Concomitant]
     Active Substance: UNSPECIFIED INGREDIENT
     Dosage: 2.5 MG, 3X/DAY
     Route: 051
     Dates: start: 20170510

REACTIONS (3)
  - Haematemesis [Unknown]
  - Trichoglossia [Recovered/Resolved]
  - Wrong technique in product usage process [Unknown]

NARRATIVE: CASE EVENT DATE: 20170410
